FAERS Safety Report 24716200 (Version 2)
Quarter: 2025Q1

REPORT INFORMATION
  Report Type: Spontaneous
  Country: US (occurrence: US)
  Receive Date: 20241210
  Receipt Date: 20250110
  Transmission Date: 20250408
  Serious: No
  Sender: JOHNSON AND JOHNSON
  Company Number: US-JNJFOC-20241214169

PATIENT
  Age: 44 Year
  Sex: Female
  Weight: 50.8 kg

DRUGS (1)
  1. SPRAVATO [Suspect]
     Active Substance: ESKETAMINE
     Indication: Major depression
     Route: 045
     Dates: start: 20241103

REACTIONS (3)
  - Fatigue [Unknown]
  - Fatigue [Not Recovered/Not Resolved]
  - Renal disorder [Unknown]
